FAERS Safety Report 7510778-6 (Version None)
Quarter: 2011Q2

REPORT INFORMATION
  Report Type: 
  Country: None (occurrence: None)
  Receive Date: 20110530
  Receipt Date: 20110524
  Transmission Date: 20111010
  Serious: Yes (Life-Threatening)
  Sender: FDA-Public Use
  Company Number: PHHY2011BR44776

PATIENT
  Sex: Female
  Weight: 54 kg

DRUGS (2)
  1. EXELON [Suspect]
     Indication: AMNESIA
     Dosage: 9MG/5CM2, ONE PATCH PER DAY
     Route: 062
  2. EXELON [Suspect]
     Dosage: 18MG/10CM2/1 PATCH A DAY
     Route: 062
     Dates: start: 20110201, end: 20110201

REACTIONS (5)
  - FEELING ABNORMAL [None]
  - MALAISE [None]
  - VOMITING [None]
  - HEADACHE [None]
  - DRUG INEFFECTIVE [None]
